FAERS Safety Report 16673517 (Version 1)
Quarter: 2019Q3

REPORT INFORMATION
  Report Type: Spontaneous
  Country: BR (occurrence: BR)
  Receive Date: 20190806
  Receipt Date: 20190806
  Transmission Date: 20191004
  Serious: Yes (Hospitalization)
  Sender: FDA-Public Use
  Company Number: BR-DSJP-DSE-2019-129934AA

PATIENT

DRUGS (1)
  1. LIXIANA 30MG [Suspect]
     Active Substance: EDOXABAN TOSYLATE
     Indication: CARDIAC VALVE DISEASE
     Dosage: 30 MG, QD
     Route: 048

REACTIONS (9)
  - Hypotension [Recovered/Resolved]
  - Dizziness [Unknown]
  - Dizziness [Recovered/Resolved]
  - Hypotension [Unknown]
  - Anaemia [Recovered/Resolved]
  - Haemorrhage [Unknown]
  - Haemorrhage [Recovered/Resolved]
  - Anaemia [Unknown]
  - Off label use [Not Recovered/Not Resolved]

NARRATIVE: CASE EVENT DATE: 2019
